FAERS Safety Report 18658921 (Version 1)
Quarter: 2020Q4

REPORT INFORMATION
  Report Type: Spontaneous
  Country: US (occurrence: US)
  Receive Date: 20201223
  Receipt Date: 20201223
  Transmission Date: 20210114
  Serious: No
  Sender: FDA-Public Use
  Company Number: US-FAGRON STERILE SERVICES-2103428

PATIENT

DRUGS (1)
  1. LIDOCAINE 1%/ PHENYLEPHRINE 1.5% IN BSS PF/SF SOLUTION FOR INJECTION [Suspect]
     Active Substance: LIDOCAINE\PHENYLEPHRINE

REACTIONS (1)
  - Miosis [None]
